FAERS Safety Report 25757135 (Version 1)
Quarter: 2025Q3

REPORT INFORMATION
  Report Type: Spontaneous
  Country: CN (occurrence: CN)
  Receive Date: 20250903
  Receipt Date: 20250903
  Transmission Date: 20251021
  Serious: Yes (Other)
  Sender: TAKEDA
  Company Number: CN-JNJFOC-20160115550

PATIENT
  Age: 49 Year
  Sex: Female

DRUGS (7)
  1. VELCADE [Suspect]
     Active Substance: BORTEZOMIB
     Indication: Transplant rejection
     Dosage: 1.3 MILLIGRAM/SQ. METER, QD
     Dates: start: 2010
  2. VELCADE [Suspect]
     Active Substance: BORTEZOMIB
  3. VELCADE [Suspect]
     Active Substance: BORTEZOMIB
  4. METHYLPREDNISOLONE [Suspect]
     Active Substance: METHYLPREDNISOLONE
     Indication: Transplant rejection
     Dosage: 250 MILLIGRAM, QD
     Dates: start: 2010
  5. CYCLOSPORINE [Suspect]
     Active Substance: CYCLOSPORINE
     Indication: Transplant rejection
     Dosage: 5 MILLIGRAM/KILOGRAM, QD
  6. CYCLOSPORINE [Suspect]
     Active Substance: CYCLOSPORINE
  7. CYCLOSPORINE [Suspect]
     Active Substance: CYCLOSPORINE

REACTIONS (12)
  - Anuria [Recovered/Resolved]
  - Abdominal discomfort [Unknown]
  - Neuropathy peripheral [Unknown]
  - Thrombocytopenia [Recovered/Resolved]
  - Hypotension [Unknown]
  - Fatigue [Unknown]
  - Dizziness [Unknown]
  - Nausea [Unknown]
  - Headache [Unknown]
  - Immunosuppressant drug level increased [Recovered/Resolved]
  - Product use in unapproved indication [Unknown]
  - Off label use [Unknown]

NARRATIVE: CASE EVENT DATE: 20100101
